FAERS Safety Report 22646210 (Version 4)
Quarter: 2024Q2

REPORT INFORMATION
  Report Type: Spontaneous
  Country: US (occurrence: US)
  Receive Date: 20230627
  Receipt Date: 20240418
  Transmission Date: 20240716
  Serious: No
  Sender: FDA-Public Use
  Company Number: US-PFIZER INC-202300228832

PATIENT
  Age: 71 Year
  Sex: Female
  Weight: 83.46 kg

DRUGS (1)
  1. VYNDAMAX [Suspect]
     Active Substance: TAFAMIDIS
     Indication: Arterial occlusive disease
     Dosage: 61 MG, 1X/DAY
     Route: 048

REACTIONS (3)
  - Essential tremor [Not Recovered/Not Resolved]
  - Brain fog [Unknown]
  - Hypoacusis [Unknown]

NARRATIVE: CASE EVENT DATE: 20210101
